FAERS Safety Report 6263583-5 (Version None)
Quarter: 2009Q3

REPORT INFORMATION
  Report Type: 
  Country: None (occurrence: None)
  Receive Date: 20090710
  Receipt Date: 20090522
  Transmission Date: 20100115
  Serious: No
  Sender: FDA-Public Use
  Company Number: A0783590A

PATIENT
  Age: 44 Year
  Sex: Female

DRUGS (6)
  1. TYKERB [Suspect]
     Indication: DRUG USE FOR UNKNOWN INDICATION
     Dosage: 3TAB PER DAY
     Route: 048
     Dates: end: 20090512
  2. RADIATION [Suspect]
  3. HERCEPTIN [Concomitant]
  4. NAVELBINE [Concomitant]
  5. GEMZAR [Concomitant]
  6. ZOMETA [Concomitant]

REACTIONS (4)
  - ANXIETY [None]
  - DECREASED APPETITE [None]
  - DIARRHOEA [None]
  - VOMITING [None]
